FAERS Safety Report 18512032 (Version 1)
Quarter: 2020Q4

REPORT INFORMATION
  Report Type: Spontaneous
  Country: US (occurrence: US)
  Receive Date: 20201117
  Receipt Date: 20201117
  Transmission Date: 20210114
  Serious: Yes (Death, Other)
  Sender: FDA-Public Use
  Company Number: US-PFIZER INC-2020447247

PATIENT
  Age: 88 Year
  Sex: Female
  Weight: 47.63 kg

DRUGS (1)
  1. GEODON [Suspect]
     Active Substance: ZIPRASIDONE HYDROCHLORIDE\ZIPRASIDONE MESYLATE
     Indication: AGGRESSION
     Dosage: UNK
     Dates: start: 202010, end: 202010

REACTIONS (2)
  - Embolism [Fatal]
  - Coma [Unknown]
